FAERS Safety Report 9626983 (Version 2)
Quarter: 2013Q4

REPORT INFORMATION
  Report Type: Spontaneous
  Country: DE (occurrence: DE)
  Receive Date: 20131016
  Receipt Date: 20131127
  Transmission Date: 20140711
  Serious: Yes (Hospitalization, Other)
  Sender: FDA-Public Use
  Company Number: DE-US-EMD SERONO, INC.-7242364

PATIENT
  Age: 46 Year
  Sex: Female

DRUGS (2)
  1. REBIF [Suspect]
     Indication: MULTIPLE SCLEROSIS
     Route: 058
     Dates: start: 20080710
  2. TRIMIPRAMINE [Concomitant]
     Indication: SLEEP DISORDER
     Route: 048

REACTIONS (2)
  - Carotid artery aneurysm [Recovered/Resolved]
  - Carotid artery aneurysm [Recovered/Resolved]
